FAERS Safety Report 5276733-4 (Version None)
Quarter: 2007Q1

REPORT INFORMATION
  Report Type: 
  Country: None (occurrence: None)
  Receive Date: 20070327
  Receipt Date: 20070315
  Transmission Date: 20070707
  Serious: Yes (Other)
  Sender: FDA-Public Use
  Company Number: PHBS2007BR04717

PATIENT
  Sex: Female
  Weight: 59 kg

DRUGS (5)
  1. DIOVAN HCT [Suspect]
     Indication: HYPERTENSION
     Route: 048
  2. COMBIPATCH [Suspect]
     Indication: HORMONE REPLACEMENT THERAPY
     Dosage: EVERY 3 OR 4 DAYS
     Route: 062
  3. BROMAZEPAM [Concomitant]
     Indication: SLEEP DISORDER
     Dosage: 1.5 MG, QD
     Route: 048
  4. ASSERT [Concomitant]
     Indication: ANXIETY
     Dosage: UNK, QD
     Route: 048
     Dates: start: 20070308
  5. ALCOHOL [Concomitant]

REACTIONS (2)
  - BLOOD PRESSURE FLUCTUATION [None]
  - HOT FLUSH [None]
